FAERS Safety Report 26174007 (Version 1)
Quarter: 2025Q4

REPORT INFORMATION
  Report Type: Report from Study
  Country: US (occurrence: US)
  Receive Date: 20251218
  Receipt Date: 20251218
  Transmission Date: 20260117
  Serious: Yes (Other)
  Sender: TAKEDA
  Company Number: US-TAKEDA-2025TUS092037

PATIENT
  Age: 47 Year
  Sex: Female

DRUGS (7)
  1. FRUQUINTINIB [Suspect]
     Active Substance: FRUQUINTINIB
     Indication: Colon cancer
     Dosage: 4 MILLIGRAM
  2. FRUQUINTINIB [Suspect]
     Active Substance: FRUQUINTINIB
     Dosage: 3 MILLIGRAM
  3. FRUQUINTINIB [Suspect]
     Active Substance: FRUQUINTINIB
     Dosage: 4 MILLIGRAM, QD
  4. ALBUTEROL SULFATE [Concomitant]
     Active Substance: ALBUTEROL SULFATE
     Dosage: UNK
  5. BENZONATATE [Concomitant]
     Active Substance: BENZONATATE
     Dosage: UNK
  6. GABAPENTIN [Concomitant]
     Active Substance: GABAPENTIN
     Dosage: UNK
  7. TYLENOL EXTRA STRENGTH [Concomitant]
     Active Substance: ACETAMINOPHEN
     Dosage: UNK

REACTIONS (5)
  - Immobile [Unknown]
  - Burning sensation [Not Recovered/Not Resolved]
  - Pain [Unknown]
  - Pain in extremity [Unknown]
  - Blood pressure increased [Not Recovered/Not Resolved]
